FAERS Safety Report 12115773 (Version 3)
Quarter: 2017Q1

REPORT INFORMATION
  Report Type: Spontaneous
  Country: US (occurrence: US)
  Receive Date: 20160225
  Receipt Date: 20170228
  Transmission Date: 20170428
  Serious: No
  Sender: FDA-Public Use
  Company Number: US-PFIZER INC-2016107111

PATIENT
  Age: 74 Year
  Sex: Male
  Weight: 87 kg

DRUGS (3)
  1. SUTENT [Suspect]
     Active Substance: SUNITINIB MALATE
     Indication: RENAL CELL CARCINOMA
     Dosage: 50 MG, CYCLIC (ONCE DAILY, EVERY MORNING, 28 DAYS THEN OFF 14 DAYS)
     Dates: start: 201507
  2. SUTENT [Suspect]
     Active Substance: SUNITINIB MALATE
     Dosage: 50 MG, CYCLIC (ON DAYS 1-14 AND OFF ON DAYS 15-28
     Route: 048
     Dates: start: 20170222
  3. SUTENT [Suspect]
     Active Substance: SUNITINIB MALATE
     Dosage: 50 MG, UNK
     Dates: start: 20160222

REACTIONS (4)
  - Candida infection [Unknown]
  - Headache [Unknown]
  - Malaise [Recovered/Resolved]
  - Asthenia [Not Recovered/Not Resolved]
